FAERS Safety Report 24710869 (Version 1)
Quarter: 2024Q4

REPORT INFORMATION
  Report Type: Spontaneous
  Country: IS (occurrence: IS)
  Receive Date: 20241209
  Receipt Date: 20241209
  Transmission Date: 20250115
  Serious: Yes (Death)
  Sender: CHEPLAPHARM
  Company Number: None

PATIENT
  Sex: Female

DRUGS (5)
  1. OLANZAPINE [Suspect]
     Active Substance: OLANZAPINE
  2. AMPHETAMINE [Suspect]
     Active Substance: AMPHETAMINE
     Indication: Product used for unknown indication
  3. METHYLPHENIDATE [Suspect]
     Active Substance: METHYLPHENIDATE
  4. CODEINE [Suspect]
     Active Substance: CODEINE
  5. ZOPICLONE [Suspect]
     Active Substance: ZOPICLONE

REACTIONS (1)
  - Toxicity to various agents [Fatal]

NARRATIVE: CASE EVENT DATE: 20230101
